FAERS Safety Report 4383807-9 (Version None)
Quarter: 2004Q2

REPORT INFORMATION
  Report Type: 
  Country: None (occurrence: None)
  Receive Date: 20040608
  Receipt Date: 20031016
  Transmission Date: 20050107
  Serious: Yes (Other)
  Sender: FDA-Public Use
  Company Number: 200313798BCC

PATIENT
  Age: 81 Year
  Sex: Female
  Weight: 57.6068 kg

DRUGS (3)
  1. ALEVE [Suspect]
     Indication: ARTHRITIS
  2. VITAMIN B-12 [Concomitant]
  3. TYLENOL PM [Concomitant]

REACTIONS (1)
  - ASTHMA [None]
